FAERS Safety Report 19611233 (Version 1)
Quarter: 2021Q3

REPORT INFORMATION
  Report Type: Spontaneous
  Country: US (occurrence: US)
  Receive Date: 20210726
  Receipt Date: 20210726
  Transmission Date: 20211014
  Serious: No
  Sender: FDA-Public Use
  Company Number: US-ENDO PHARMACEUTICALS INC-2021-000302

PATIENT
  Age: 72 Year
  Sex: Male

DRUGS (3)
  1. EDEX [Suspect]
     Active Substance: ALPROSTADIL
     Indication: PRODUCT USED FOR UNKNOWN INDICATION
     Dosage: 20 MCG;  UNKNOWN, UNKNOWN
     Route: 065
     Dates: start: 202012
  2. EDEX [Suspect]
     Active Substance: ALPROSTADIL
     Indication: PRODUCT USED FOR UNKNOWN INDICATION
     Dosage: 20 MCG;  UNKNOWN, UNKNOWN
     Route: 065
     Dates: start: 202012
  3. EDEX [Suspect]
     Active Substance: ALPROSTADIL
     Indication: PRODUCT USED FOR UNKNOWN INDICATION
     Dosage: 20 MCG;  UNKNOWN, UNKNOWN
     Route: 065
     Dates: start: 202012

REACTIONS (3)
  - Drug ineffective [Unknown]
  - Incorrect dose administered [Recovered/Resolved]
  - Erectile dysfunction [Unknown]

NARRATIVE: CASE EVENT DATE: 202012
